FAERS Safety Report 17034491 (Version 2)
Quarter: 2019Q4

REPORT INFORMATION
  Report Type: Report from Study
  Country: US (occurrence: US)
  Receive Date: 20191115
  Receipt Date: 20191125
  Transmission Date: 20200122
  Serious: Yes (Other)
  Sender: FDA-Public Use
  Company Number: NVSC2019US036632

PATIENT
  Sex: Male

DRUGS (1)
  1. ENTRESTO [Suspect]
     Active Substance: SACUBITRIL\VALSARTAN
     Indication: CARDIAC FAILURE CONGESTIVE
     Dosage: 1 DF (24/26 MG), BID
     Route: 065
     Dates: start: 2015

REACTIONS (6)
  - Pneumonia [Recovering/Resolving]
  - Fatigue [Not Recovered/Not Resolved]
  - Chronic obstructive pulmonary disease [Unknown]
  - Asthenia [Not Recovered/Not Resolved]
  - Chest pain [Recovering/Resolving]
  - Dyspnoea [Not Recovered/Not Resolved]

NARRATIVE: CASE EVENT DATE: 2015
